FAERS Safety Report 7807922-X (Version None)
Quarter: 2011Q4

REPORT INFORMATION
  Report Type: 
  Country: None (occurrence: None)
  Receive Date: 20111011
  Receipt Date: 20111011
  Transmission Date: 20120403
  Serious: Yes (Life-Threatening, Hospitalization, Other)
  Sender: FDA-Public Use
  Company Number: None

PATIENT
  Age: 32 Year
  Sex: Female
  Weight: 107.95 kg

DRUGS (1)
  1. METHYLPREDNISOLONE [Suspect]
     Indication: ARTHRITIS VIRAL
     Dates: start: 20111005, end: 20111006

REACTIONS (5)
  - HEART RATE INCREASED [None]
  - CHEST PAIN [None]
  - HEADACHE [None]
  - ABNORMAL SENSATION IN EYE [None]
  - FLUSHING [None]
